FAERS Safety Report 6925890-X (Version None)
Quarter: 2010Q3

REPORT INFORMATION
  Report Type: 
  Country: None (occurrence: None)
  Receive Date: 20100816
  Receipt Date: 20100808
  Transmission Date: 20110219
  Serious: Yes (Other)
  Sender: FDA-Public Use
  Company Number: IL-NAPPMUNDI-GBR-2010-0006915

PATIENT
  Age: 80 Year
  Sex: Male

DRUGS (4)
  1. BUTRANS 10MG TRANSDERMAL PATCH [Suspect]
     Indication: BACK PAIN
     Dosage: 10 MCG, Q1H
     Route: 062
     Dates: start: 20100801
  2. CARDILOC [Concomitant]
     Indication: HYPERTENSION
     Dosage: 5 MG, UNK
  3. ENALADEX [Concomitant]
     Indication: HYPERTENSION
     Dosage: 5 MG, UNK
  4. NORMOPRESAN [Concomitant]
     Indication: HYPERTENSION
     Dosage: 0.15 MG, UNK

REACTIONS (5)
  - BLOOD PRESSURE FLUCTUATION [None]
  - HEADACHE [None]
  - HEART RATE INCREASED [None]
  - HYPERTENSION [None]
  - INADEQUATE ANALGESIA [None]
